FAERS Safety Report 11059042 (Version 1)
Quarter: 2015Q2

REPORT INFORMATION
  Report Type: Report from Study
  Country: US (occurrence: US)
  Receive Date: 20150423
  Receipt Date: 20150423
  Transmission Date: 20150821
  Serious: Yes (Other)
  Sender: FDA-Public Use
  Company Number: US-ROCHE-1566256

PATIENT

DRUGS (15)
  1. CYTARABINE. [Suspect]
     Active Substance: CYTARABINE
     Indication: CENTRAL NERVOUS SYSTEM LYMPHOMA
     Route: 065
  2. CARMUSTINE [Suspect]
     Active Substance: CARMUSTINE
     Indication: CENTRAL NERVOUS SYSTEM LYMPHOMA
     Route: 065
  3. PROCARBAZINE [Suspect]
     Active Substance: PROCARBAZINE
     Indication: CENTRAL NERVOUS SYSTEM LYMPHOMA
     Route: 065
  4. TEMOZOLOMIDE. [Suspect]
     Active Substance: TEMOZOLOMIDE
     Indication: CENTRAL NERVOUS SYSTEM LYMPHOMA
     Route: 065
  5. BUSULFAN [Suspect]
     Active Substance: BUSULFAN
     Indication: CENTRAL NERVOUS SYSTEM LYMPHOMA
     Dosage: ON DAYS 6 AND 4 OF THE CYCLE.
     Route: 042
  6. RITUXIMAB [Suspect]
     Active Substance: RITUXIMAB
     Indication: CENTRAL NERVOUS SYSTEM LYMPHOMA
     Route: 065
  7. IFOSFAMIDE. [Suspect]
     Active Substance: IFOSFAMIDE
     Indication: CENTRAL NERVOUS SYSTEM LYMPHOMA
     Route: 065
  8. MELPHALAN [Suspect]
     Active Substance: MELPHALAN
     Indication: CENTRAL NERVOUS SYSTEM LYMPHOMA
     Route: 065
  9. DOXORUBICIN [Suspect]
     Active Substance: DOXORUBICIN
     Indication: CENTRAL NERVOUS SYSTEM LYMPHOMA
     Route: 065
  10. ETOPOSIDE. [Suspect]
     Active Substance: ETOPOSIDE
     Indication: CENTRAL NERVOUS SYSTEM LYMPHOMA
     Route: 065
  11. METHOTREXATE [Suspect]
     Active Substance: METHOTREXATE
     Indication: CENTRAL NERVOUS SYSTEM LYMPHOMA
     Route: 042
  12. CARBOPLATIN. [Suspect]
     Active Substance: CARBOPLATIN
     Indication: CENTRAL NERVOUS SYSTEM LYMPHOMA
     Route: 065
  13. THIOTEPA. [Suspect]
     Active Substance: THIOTEPA
     Indication: CENTRAL NERVOUS SYSTEM LYMPHOMA
     Dosage: ON DAYS 9 AND 7 OF CYCLE.
     Route: 042
  14. VINCRISTINE [Suspect]
     Active Substance: VINCRISTINE
     Indication: CENTRAL NERVOUS SYSTEM LYMPHOMA
     Route: 065
  15. CYCLOPHOSPHAMIDE. [Suspect]
     Active Substance: CYCLOPHOSPHAMIDE
     Indication: CENTRAL NERVOUS SYSTEM LYMPHOMA
     Dosage: ON DAYS 3 AND 2 CYCLE.
     Route: 042

REACTIONS (7)
  - Diarrhoea [Unknown]
  - Febrile neutropenia [Unknown]
  - Decreased appetite [Unknown]
  - Pericarditis [Unknown]
  - Fatigue [Unknown]
  - Mucosal inflammation [Unknown]
  - Colitis [Unknown]
